FAERS Safety Report 10048140 (Version 1)
Quarter: 2014Q1

REPORT INFORMATION
  Report Type: Spontaneous
  Country: US (occurrence: None)
  Receive Date: 20140306
  Receipt Date: 20140306
  Transmission Date: 20141002
  Serious: Yes (Hospitalization)
  Sender: FDA-Public Use
  Company Number: 163-21880-13094486

PATIENT
  Age: 82 Year
  Sex: Male
  Weight: 90.27 kg

DRUGS (6)
  1. REVLIMID [Suspect]
     Indication: PLASMA CELL MYELOMA
     Route: 048
     Dates: start: 20130607
  2. METOPROLOL (METOPROLOL) [Concomitant]
  3. DEXAMETHASONE (DEXAMETHASONE) [Concomitant]
  4. LORAZEPAM (LORAZEPAM) [Concomitant]
  5. LEVOTHYROXINE (LEVOTHYROXINE) [Concomitant]
  6. ASPIRIN (UNKINWON) [Concomitant]

REACTIONS (3)
  - Full blood count decreased [None]
  - White blood cell count decreased [None]
  - Neutropenia [None]
